FAERS Safety Report 7120829-9 (Version None)
Quarter: 2010Q4

REPORT INFORMATION
  Report Type: 
  Country: None (occurrence: None)
  Receive Date: 20101124
  Receipt Date: 20101111
  Transmission Date: 20110411
  Serious: No
  Sender: FDA-Public Use
  Company Number: US-JNJFOC-20101105030

PATIENT
  Sex: Female
  Weight: 82.1 kg

DRUGS (10)
  1. FENTANYL-100 [Suspect]
     Indication: NEUROPATHY PERIPHERAL
     Route: 062
     Dates: start: 20100901
  2. RAMIPRIL [Concomitant]
     Indication: PROPHYLAXIS
     Route: 048
  3. METOPROLOL [Concomitant]
     Indication: ILL-DEFINED DISORDER
     Route: 048
  4. METOPROLOL TARTRATE [Concomitant]
     Indication: CARDIAC DISORDER
     Route: 048
  5. PLAVIX [Concomitant]
     Indication: VEIN DISORDER
     Route: 048
  6. LYRICA [Concomitant]
     Indication: ILL-DEFINED DISORDER
     Route: 048
  7. DARVOCET [Concomitant]
     Indication: PAIN
     Dosage: AS NEEDED
     Route: 048
  8. LIPITOR [Concomitant]
     Indication: BLOOD CHOLESTEROL
     Route: 048
  9. CELEBREX [Concomitant]
     Indication: ILL-DEFINED DISORDER
     Route: 048
  10. NIACIN [Concomitant]
     Indication: BLOOD CHOLESTEROL
     Route: 048

REACTIONS (2)
  - PRODUCT ADHESION ISSUE [None]
  - WRONG TECHNIQUE IN DRUG USAGE PROCESS [None]
